FAERS Safety Report 5655273-4 (Version None)
Quarter: 2008Q1

REPORT INFORMATION
  Report Type: 
  Country: None (occurrence: None)
  Receive Date: 20080307
  Receipt Date: 20080229
  Transmission Date: 20080703
  Serious: Yes (Hospitalization)
  Sender: FDA-Public Use
  Company Number: B0510274A

PATIENT
  Age: 21 Year
  Sex: Female

DRUGS (9)
  1. FLOLAN [Suspect]
     Indication: PULMONARY HYPERTENSION
     Route: 042
     Dates: start: 20040601
  2. VIAGRA [Suspect]
     Indication: DRUG USE FOR UNKNOWN INDICATION
     Route: 048
     Dates: start: 20080212, end: 20080216
  3. WARFARIN SODIUM [Concomitant]
     Route: 048
  4. NU-LOTAN [Concomitant]
     Route: 048
  5. ZITHROMAX [Concomitant]
     Route: 048
  6. COLDRIN [Concomitant]
     Route: 048
  7. MUCOSOLVAN [Concomitant]
     Route: 048
  8. VENETLIN [Concomitant]
     Route: 065
  9. TRACLEER [Concomitant]
     Route: 048

REACTIONS (2)
  - EOSINOPHILIC PNEUMONIA [None]
  - PLEURAL EFFUSION [None]
